FAERS Safety Report 15311274 (Version 1)
Quarter: 2018Q3

REPORT INFORMATION
  Report Type: Spontaneous
  Country: US (occurrence: US)
  Receive Date: 20180823
  Receipt Date: 20180823
  Transmission Date: 20181010
  Serious: Yes (Other)
  Sender: FDA-Public Use
  Company Number: US-PFIZER INC-2018337788

PATIENT
  Age: 66 Year
  Sex: Female
  Weight: 71 kg

DRUGS (1)
  1. XELJANZ [Suspect]
     Active Substance: TOFACITINIB CITRATE
     Indication: RHEUMATOID ARTHRITIS
     Dosage: 5 MG, 2X/DAY
     Dates: start: 20180502, end: 20180708

REACTIONS (4)
  - Upper respiratory tract infection [Not Recovered/Not Resolved]
  - Drug effect incomplete [Unknown]
  - Deafness [Recovering/Resolving]
  - Labyrinthitis [Recovering/Resolving]

NARRATIVE: CASE EVENT DATE: 20180706
